FAERS Safety Report 24890528 (Version 2)
Quarter: 2025Q1

REPORT INFORMATION
  Report Type: Spontaneous
  Country: US (occurrence: US)
  Receive Date: 20250127
  Receipt Date: 20250226
  Transmission Date: 20250409
  Serious: No
  Sender: PFIZER
  Company Number: US-PFIZER INC-PV202500009937

PATIENT
  Age: 22 Year
  Sex: Female
  Weight: 93.878 kg

DRUGS (3)
  1. GENOTROPIN [Suspect]
     Active Substance: SOMATROPIN
     Indication: Hypopituitarism
  2. GENOTROPIN [Suspect]
     Active Substance: SOMATROPIN
     Dosage: 0.6 MG, DAILY (SIX DAYS PER WEEK)
     Route: 058
     Dates: start: 20250121
  3. HYDROCORTISONE [Concomitant]
     Active Substance: HYDROCORTISONE

REACTIONS (3)
  - Insulin-like growth factor decreased [Not Recovered/Not Resolved]
  - Product prescribing error [Unknown]
  - Off label use [Unknown]
